FAERS Safety Report 9687738 (Version 1)
Quarter: 2013Q4

REPORT INFORMATION
  Report Type: Spontaneous
  Country: US (occurrence: US)
  Receive Date: 20131114
  Receipt Date: 20131114
  Transmission Date: 20140711
  Serious: No
  Sender: FDA-Public Use
  Company Number: US-PFIZER INC-2013321086

PATIENT
  Age: 21 Year
  Sex: Male
  Weight: 82.54 kg

DRUGS (1)
  1. ADVIL [Suspect]
     Indication: HEADACHE
     Dosage: UNK
     Dates: start: 201310

REACTIONS (1)
  - Erection increased [Not Recovered/Not Resolved]
